FAERS Safety Report 5800838-X (Version None)
Quarter: 2008Q3

REPORT INFORMATION
  Report Type: 
  Country: None (occurrence: None)
  Receive Date: 20080701
  Receipt Date: 20080616
  Transmission Date: 20090109
  Serious: Yes (Hospitalization)
  Sender: FDA-Public Use
  Company Number: 2008AL007455

PATIENT
  Age: 75 Year
  Sex: Female

DRUGS (7)
  1. METFORMIN HYDROCHLORIDE [Suspect]
     Indication: DIABETES MELLITUS
     Dates: end: 20080503
  2. MINDIAB [Concomitant]
  3. SIMVASTATIN [Concomitant]
  4. WARFARIN SODIUM [Concomitant]
  5. HEMINEVRIN [Concomitant]
  6. SOTALOL HCL [Concomitant]
  7. RAMIPRIL [Concomitant]

REACTIONS (5)
  - BLOOD CREATININE INCREASED [None]
  - BLOOD GLUCOSE DECREASED [None]
  - DEPRESSED LEVEL OF CONSCIOUSNESS [None]
  - HYPERKALAEMIA [None]
  - RENAL FAILURE [None]
